FAERS Safety Report 4402392-6 (Version None)
Quarter: 2004Q3

REPORT INFORMATION
  Report Type: 
  Country: None (occurrence: None)
  Receive Date: 20040713
  Receipt Date: 20040628
  Transmission Date: 20050211
  Serious: Yes (Hospitalization)
  Sender: FDA-Public Use
  Company Number: HQWYE761118SEP03

PATIENT
  Age: 13 Year
  Sex: Male
  Weight: 39.5 kg

DRUGS (2)
  1. REFACTO [Suspect]
     Indication: FACTOR VIII DEFICIENCY
     Dosage: 1000 IU 1X PER 2 DAY, INTRAVENOUS
     Route: 042
     Dates: start: 20020101
  2. REFACTO [Suspect]
     Indication: PROPHYLAXIS
     Dosage: 1000 IU 1X PER 2 DAY, INTRAVENOUS
     Route: 042
     Dates: start: 20020101

REACTIONS (6)
  - COAGULATION FACTOR VIII LEVEL DECREASED [None]
  - DRUG EFFECT DECREASED [None]
  - HAEMORRHAGE [None]
  - HAEMORRHAGE INTRACRANIAL [None]
  - INJURY [None]
  - REFUSAL OF TREATMENT BY RELATIVE [None]
